FAERS Safety Report 5467657-8 (Version None)
Quarter: 2007Q3

REPORT INFORMATION
  Report Type: 
  Country: None (occurrence: None)
  Receive Date: 20070921
  Receipt Date: 20070911
  Transmission Date: 20080115
  Serious: Yes (Other)
  Sender: FDA-Public Use
  Company Number: GXKR2007GB07928

PATIENT
  Age: 76 Year
  Sex: Male

DRUGS (5)
  1. BISOPROLOL FUMARATE [Suspect]
     Indication: ATRIAL FIBRILLATION
     Dosage: 2.5 MG, ORAL
     Route: 048
     Dates: start: 20070612, end: 20070716
  2. ACETYLSALICYLIC ACID SRT [Concomitant]
  3. DIGOXIN [Concomitant]
  4. ESOMEPRAZOLE (ESOMEPRAZOLE) [Concomitant]
  5. RAMIPRIL [Concomitant]

REACTIONS (1)
  - HEPATITIS [None]
